FAERS Safety Report 7364261-1 (Version None)
Quarter: 2011Q1

REPORT INFORMATION
  Report Type: 
  Country: None (occurrence: None)
  Receive Date: 20110321
  Receipt Date: 20110311
  Transmission Date: 20110831
  Serious: Yes (Congenital Anomaly)
  Sender: FDA-Public Use
  Company Number: A0918924A

PATIENT
  Sex: Female
  Weight: 3.1 kg

DRUGS (1)
  1. PAXIL [Suspect]
     Indication: DEPRESSION
     Dosage: 30MG PER DAY
     Route: 064

REACTIONS (3)
  - CONGENITAL ORAL MALFORMATION [None]
  - SCAR [None]
  - DRUG EXPOSURE DURING PREGNANCY [None]
